FAERS Safety Report 12535692 (Version 1)
Quarter: 2016Q3

REPORT INFORMATION
  Report Type: Spontaneous
  Country: RU (occurrence: RU)
  Receive Date: 20160707
  Receipt Date: 20160707
  Transmission Date: 20161109
  Serious: Yes (Hospitalization, Other)
  Sender: FDA-Public Use
  Company Number: RU-SUN PHARMACEUTICAL INDUSTRIES LTD-2016RR-119788

PATIENT
  Age: 21 Year
  Sex: Female

DRUGS (7)
  1. CONVULEX [Suspect]
     Active Substance: VALPROIC ACID
     Dosage: MAXIMUM 3000 MG/DAY, SLOW INJECTION
     Route: 042
  2. ARDUAN [Suspect]
     Active Substance: PIPECURONIUM BROMIDE
     Indication: EPILEPSY
     Dosage: 4 MG, DIRECT VENOUS INJECTION
     Route: 042
  3. SODIUM THIOPENTAL [Suspect]
     Active Substance: THIOPENTAL SODIUM
     Indication: EPILEPSY
     Dosage: 1000 MG, SLOW INJECTION
     Route: 042
  4. TOPIRAMATE. [Suspect]
     Active Substance: TOPIRAMATE
     Indication: EPILEPSY
     Dosage: 150 MG, DAILY
     Route: 065
  5. CONVULEX [Suspect]
     Active Substance: VALPROIC ACID
     Indication: EPILEPSY
     Dosage: 1000 MG, DIRECT VENOUS INJECTION
     Route: 042
  6. RELANIUM [Suspect]
     Active Substance: DIAZEPAM
     Indication: EPILEPSY
     Dosage: 40 MG, UNK
     Route: 042
  7. CARBAMAZEPINE. [Suspect]
     Active Substance: CARBAMAZEPINE
     Indication: EPILEPSY
     Dosage: 300 MG, DAILY (100 MG IN THE MORNING, 200 MG IN THE EVENING)
     Route: 065

REACTIONS (2)
  - Epilepsy [Recovering/Resolving]
  - Drug ineffective [Unknown]

NARRATIVE: CASE EVENT DATE: 20140405
